FAERS Safety Report 11030962 (Version 2)
Quarter: 2015Q3

REPORT INFORMATION
  Report Type: Spontaneous
  Country: US (occurrence: US)
  Receive Date: 20150415
  Receipt Date: 20150709
  Transmission Date: 20151125
  Serious: No
  Sender: FDA-Public Use
  Company Number: US-SA-2015SA029921

PATIENT
  Age: 61 Year
  Sex: Male

DRUGS (4)
  1. AFREZZA [Suspect]
     Active Substance: INSULIN HUMAN
     Dosage: FREQ: WITH MEALS DOSE:16 UNIT(S)
     Route: 065
     Dates: start: 201502, end: 201502
  2. AFREZZA [Suspect]
     Active Substance: INSULIN HUMAN
     Dosage: FREQ: WITH MEALS DOSE:12 UNIT(S)
     Route: 065
     Dates: start: 20150221
  3. HUMULIN NOS [Concomitant]
     Active Substance: INSULIN HUMAN
     Dosage: FREQUENCY: WITH EACH MEAL DOSE:12 UNIT(S)
     Route: 065
  4. AFREZZA [Suspect]
     Active Substance: INSULIN HUMAN
     Dosage: FREQ: WITH MEALS DOSE:24 UNIT(S)
     Route: 065
     Dates: start: 201502

REACTIONS (2)
  - Blood glucose increased [Unknown]
  - Drug ineffective [Unknown]
